FAERS Safety Report 8874257 (Version 4)
Quarter: 2013Q2

REPORT INFORMATION
  Report Type: Spontaneous
  Country: ES (occurrence: ES)
  Receive Date: 20121031
  Receipt Date: 20130613
  Transmission Date: 20140414
  Serious: Yes (Death, Other)
  Sender: FDA-Public Use
  Company Number: ES-BIOGENIDEC-2012BI031444

PATIENT
  Sex: Male

DRUGS (2)
  1. TYSABRI [Suspect]
     Indication: MULTIPLE SCLEROSIS
     Route: 042
     Dates: start: 200801, end: 201102
  2. TYSABRI [Suspect]
     Indication: MULTIPLE SCLEROSIS
     Route: 042
     Dates: start: 201105, end: 201204

REACTIONS (3)
  - Immune reconstitution inflammatory syndrome [Unknown]
  - Multifocal motor neuropathy [Unknown]
  - Multiple sclerosis relapse [Fatal]
